FAERS Safety Report 4669170-4 (Version None)
Quarter: 2005Q2

REPORT INFORMATION
  Report Type: 
  Country: None (occurrence: None)
  Receive Date: 20050519
  Receipt Date: 20050505
  Transmission Date: 20051028
  Serious: Yes (Death)
  Sender: FDA-Public Use
  Company Number: 11049

PATIENT
  Sex: Male

DRUGS (21)
  1. DEXAMETHASONE [Suspect]
  2. DILTIAZEM [Suspect]
     Dosage: 60 MG BID;
  3. FUROSEMIDE [Suspect]
     Dosage: 80 MG
  4. METOCLOPRAMIDE [Suspect]
     Dosage: 10 MG
  5. TIOTROPIUM BROMIDE [Suspect]
     Dosage: 18 MICROGRAM FREQ UNK
  6. SALBUTAMOL/IPRATROPIUM [Suspect]
  7. ATORVASTATIN CALCIUM [Suspect]
  8. BECLOMETHASONE DIPROPIONATE [Suspect]
     Dosage: 50 MICROGRAM BID
  9. DOSULEPIN [Suspect]
     Dosage: 75 MG
  10. MAGNESIUM TRISILICATE [Suspect]
     Dosage: 10 ML
  11. LACTULOSE [Suspect]
     Dosage: 3.35 G FREQ UNK
  12. LANSOPRAZOLE [Suspect]
     Dosage: 30 MG
  13. NITROGLYCERIN [Suspect]
     Dosage: 400 MG FREQ UNK
  14. METHOTRIMEPRAZINE [Suspect]
     Dosage: 20 MG BID
  15. OXYCODONE HCL [Suspect]
  16. OXYGEN [Suspect]
  17. SPIRONOLACTONE [Suspect]
     Dosage: 50 MG FREQ UNK
  18. BUDESONIDE/EFORMOTEROL [Suspect]
     Dosage: 200 MICROGRAM BID
  19. TEMAZEPAM [Suspect]
     Dosage: 10MG NOCTE
  20. ASPIRIN [Suspect]
     Dosage: 75 MG FREQ UNK
  21. SALBUTAMOL [Suspect]
     Dosage: 100 MICROGRAM PRN

REACTIONS (1)
  - LUNG NEOPLASM MALIGNANT [None]
